FAERS Safety Report 5725393-4 (Version None)
Quarter: 2008Q2

REPORT INFORMATION
  Report Type: 
  Country: None (occurrence: None)
  Receive Date: 20080501
  Receipt Date: 20080422
  Transmission Date: 20081010
  Serious: Yes (Other)
  Sender: FDA-Public Use
  Company Number: BR-PFIZER INC-2007070611

PATIENT
  Sex: Male

DRUGS (3)
  1. CARDURAN XL [Suspect]
     Indication: PROSTATIC DISORDER
     Route: 048
  2. TAMSULOSIN HCL [Suspect]
     Indication: PROSTATIC DISORDER
     Dates: start: 20070101, end: 20070101
  3. ATENOLOL AND CHLORTHALIDONE [Concomitant]
     Dosage: TEXT:HALF A TABLET TWICE DAILY
     Route: 048

REACTIONS (10)
  - BLOOD URINE PRESENT [None]
  - DIZZINESS [None]
  - DYSURIA [None]
  - FEELING ABNORMAL [None]
  - HAEMATOCHEZIA [None]
  - HEART RATE DECREASED [None]
  - INTESTINAL HAEMORRHAGE [None]
  - INTESTINAL PERFORATION [None]
  - PROSTATIC DISORDER [None]
  - SENSORY DISTURBANCE [None]
